FAERS Safety Report 8250056-3 (Version None)
Quarter: 2012Q1

REPORT INFORMATION
  Report Type: 
  Country: None (occurrence: None)
  Receive Date: 20120328
  Receipt Date: 20120322
  Transmission Date: 20120608
  Serious: Yes (Other)
  Sender: FDA-Public Use
  Company Number: 2012SP009883

PATIENT
  Age: 20 Year
  Sex: Female

DRUGS (2)
  1. NEXPLANON [Suspect]
  2. NEXPLANON [Suspect]
     Indication: CONTRACEPTION
     Dosage: 68 MG, ONCE, SC
     Route: 058
     Dates: start: 20111206, end: 20120213

REACTIONS (3)
  - ABORTION SPONTANEOUS [None]
  - OFF LABEL USE [None]
  - PREGNANCY WITH IMPLANT CONTRACEPTIVE [None]
